FAERS Safety Report 7842208-9 (Version None)
Quarter: 2011Q4

REPORT INFORMATION
  Report Type: 
  Country: None (occurrence: None)
  Receive Date: 20111025
  Receipt Date: 20111017
  Transmission Date: 20120403
  Serious: Yes (Hospitalization, Other)
  Sender: FDA-Public Use
  Company Number: IT-TEVA-273857ISR

PATIENT
  Sex: Male

DRUGS (2)
  1. CISPLATIN [Suspect]
     Indication: CHEMOTHERAPY
     Dosage: 126 MILLIGRAM;
     Route: 042
     Dates: start: 20101206, end: 20110124
  2. GEMCITABINE [Suspect]
     Dosage: 2102 MILLIGRAM;
     Route: 042
     Dates: start: 20101206, end: 20110124

REACTIONS (1)
  - PULMONARY THROMBOSIS [None]
